FAERS Safety Report 20411114 (Version 1)
Quarter: 2022Q1

REPORT INFORMATION
  Report Type: Spontaneous
  Country: US (occurrence: None)
  Receive Date: 20220201
  Receipt Date: 20220201
  Transmission Date: 20220423
  Serious: Yes (unspecified)
  Sender: FDA-Public Use
  Company Number: None

PATIENT
  Age: 79 Year
  Sex: Male
  Weight: 70 kg

DRUGS (1)
  1. NORTRIPTYLINE HYDROCHLORIDE [Suspect]
     Active Substance: NORTRIPTYLINE HYDROCHLORIDE
     Indication: Pain
     Dosage: FREQUENCY : AT BEDTIME;?
     Route: 048
     Dates: start: 20211116, end: 20211213

REACTIONS (2)
  - Urinary retention [None]
  - Constipation [None]

NARRATIVE: CASE EVENT DATE: 20211213
